FAERS Safety Report 9216316 (Version 2)
Quarter: 2013Q4

REPORT INFORMATION
  Report Type: Spontaneous
  Country: US (occurrence: None)
  Receive Date: 20130402
  Receipt Date: 20131008
  Transmission Date: 20140711
  Serious: Yes (Hospitalization, Other)
  Sender: FDA-Public Use
  Company Number: ACO_35038_2013

PATIENT
  Age: 61 Year
  Sex: Male
  Weight: 71.7 kg

DRUGS (2)
  1. AMPYRA (DALFAMPRIDINE) TABLET [Suspect]
     Indication: GAIT DISTURBANCE
     Route: 048
     Dates: start: 20130116, end: 20130303
  2. VENLAFAXINE (VENLAFAXINE) [Concomitant]

REACTIONS (8)
  - Grand mal convulsion [None]
  - Sedation [None]
  - Confusional state [None]
  - Amnesia [None]
  - Abdominal pain upper [None]
  - Constipation [None]
  - Fall [None]
  - Renal cyst [None]
